FAERS Safety Report 7767808-6 (Version None)
Quarter: 2011Q3

REPORT INFORMATION
  Report Type: 
  Country: None (occurrence: None)
  Receive Date: 20110922
  Receipt Date: 20110419
  Transmission Date: 20111222
  Serious: No
  Sender: FDA-Public Use
  Company Number: US-ASTRAZENECA-2010SE23628

PATIENT
  Age: 48 Year
  Sex: Female
  Weight: 88.5 kg

DRUGS (15)
  1. SEROQUEL [Suspect]
     Indication: DEPRESSION
     Route: 048
     Dates: end: 20090101
  2. ATIVAN [Concomitant]
  3. SEROQUEL [Suspect]
     Indication: SLEEP DISORDER
     Route: 048
     Dates: end: 20090101
  4. SEROQUEL [Suspect]
     Indication: APPETITE DISORDER
     Route: 048
     Dates: end: 20090101
  5. AMBIEN [Concomitant]
  6. SEROQUEL [Suspect]
     Route: 048
     Dates: start: 20050101, end: 20110301
  7. SEROQUEL [Suspect]
     Indication: ANXIETY
     Route: 048
     Dates: end: 20090101
  8. SEROQUEL [Suspect]
     Route: 048
     Dates: start: 20090101
  9. SEROQUEL [Suspect]
     Route: 048
     Dates: start: 20050101, end: 20110301
  10. SEROQUEL [Suspect]
     Route: 048
     Dates: start: 20090101
  11. SEROQUEL [Suspect]
     Route: 048
     Dates: start: 20090101
  12. SEROQUEL [Suspect]
     Route: 048
     Dates: start: 20090101
  13. SEROQUEL [Suspect]
     Route: 048
     Dates: start: 20050101, end: 20110301
  14. CYMBALTA [Concomitant]
  15. SEROQUEL [Suspect]
     Route: 048
     Dates: start: 20050101, end: 20110301

REACTIONS (11)
  - FEELING JITTERY [None]
  - DECREASED APPETITE [None]
  - HYPERHIDROSIS [None]
  - DRUG DOSE OMISSION [None]
  - MALAISE [None]
  - DEPRESSION [None]
  - APHAGIA [None]
  - SOMNOLENCE [None]
  - HANGOVER [None]
  - NERVOUSNESS [None]
  - INSOMNIA [None]
